FAERS Safety Report 10244901 (Version 2)
Quarter: 2014Q3

REPORT INFORMATION
  Report Type: Spontaneous
  Country: JP (occurrence: JP)
  Receive Date: 20140618
  Receipt Date: 20140716
  Transmission Date: 20150326
  Serious: Yes (Death)
  Sender: FDA-Public Use
  Company Number: JP-TEVA-489133USA

PATIENT
  Age: 32 Year
  Sex: Male
  Weight: 68.5 kg

DRUGS (11)
  1. PENICILLIN G POTASSIUM. [Concomitant]
     Active Substance: PENICILLIN G POTASSIUM
     Indication: PRODUCT USED FOR UNKNOWN INDICATION
     Dosage: 24000000 IU (INTERNATIONAL UNIT) DAILY;
     Dates: start: 20130709, end: 20130723
  2. ALDACTONE [Concomitant]
     Active Substance: SPIRONOLACTONE
     Indication: PRODUCT USED FOR UNKNOWN INDICATION
     Dosage: 50 MILLIGRAM DAILY;
     Route: 048
     Dates: start: 20140131, end: 20140206
  3. TAKEPRON [Concomitant]
     Active Substance: LANSOPRAZOLE
     Indication: PRODUCT USED FOR UNKNOWN INDICATION
     Dosage: 30 MILLIGRAM DAILY;
     Route: 048
     Dates: start: 20130711, end: 20130724
  4. GENTACIN [Concomitant]
     Active Substance: GENTAMICIN SULFATE
     Indication: PRODUCT USED FOR UNKNOWN INDICATION
     Dosage: 210 MILLIGRAM DAILY;
     Dates: start: 20130709, end: 20130723
  5. LASIX [Concomitant]
     Active Substance: FUROSEMIDE
     Indication: PRODUCT USED FOR UNKNOWN INDICATION
     Dosage: 20 MILLIGRAM DAILY;
     Dates: start: 20140122, end: 20140204
  6. VICCILLIN [Concomitant]
     Active Substance: AMPICILLIN
     Indication: PRODUCT USED FOR UNKNOWN INDICATION
     Dosage: 4 GRAM DAILY;
     Dates: start: 20140129, end: 20140204
  7. FUROSEMIDE. [Concomitant]
     Active Substance: FUROSEMIDE
     Indication: PRODUCT USED FOR UNKNOWN INDICATION
     Dosage: 20 MILLIGRAM DAILY;
     Route: 048
     Dates: start: 20140205, end: 20140206
  8. MEROPENEM. [Concomitant]
     Active Substance: MEROPENEM
     Indication: PRODUCT USED FOR UNKNOWN INDICATION
     Dosage: 3 GRAM DAILY;
     Dates: start: 20130706, end: 20130708
  9. ZINC [Suspect]
     Active Substance: ZINC\ZINC CHLORIDE
     Dosage: 150 MILLIGRAM DAILY;
     Route: 048
     Dates: start: 20130708, end: 20130724
  10. ZINC [Suspect]
     Active Substance: ZINC\ZINC CHLORIDE
     Dosage: 150 MILLIGRAM DAILY;
     Route: 048
     Dates: start: 20140122, end: 20140206
  11. CEFTRIAXONE SODIUM. [Concomitant]
     Active Substance: CEFTRIAXONE SODIUM
     Indication: PRODUCT USED FOR UNKNOWN INDICATION
     Dosage: 2 GRAM DAILY;
     Dates: start: 20140122, end: 20140128

REACTIONS (1)
  - Hepatic cirrhosis [Fatal]

NARRATIVE: CASE EVENT DATE: 20140122
